FAERS Safety Report 13484756 (Version 1)
Quarter: 2017Q2

REPORT INFORMATION
  Report Type: Spontaneous
  Country: US (occurrence: US)
  Receive Date: 20170426
  Receipt Date: 20170426
  Transmission Date: 20170830
  Serious: No
  Sender: FDA-Public Use
  Company Number: US-PFIZER INC-2017179383

PATIENT
  Age: 57 Year
  Sex: Male
  Weight: 97.52 kg

DRUGS (11)
  1. MS CONTIN [Suspect]
     Active Substance: MORPHINE SULFATE
     Indication: PAIN
     Dosage: UNK, 1X/DAY (SLOW RELEASE 15MG, ONCE A DAY WITH WATER)
     Dates: end: 20170403
  2. LYRICA [Suspect]
     Active Substance: PREGABALIN
     Indication: NERVE INJURY
  3. AMBIEN [Concomitant]
     Active Substance: ZOLPIDEM TARTRATE
     Indication: SLEEP DISORDER
     Dosage: 5 MG, DAILY (AT BEDTIME IF NEEDED FOR SLEEP, WITH WATER)
     Dates: start: 20151110
  4. MS CONTIN [Suspect]
     Active Substance: MORPHINE SULFATE
     Indication: PAIN
     Dosage: 60 MG, EVERY 12 HOURS, TABLET, WITH WATER
     Dates: end: 20170403
  5. COREG [Concomitant]
     Active Substance: CARVEDILOL
     Dosage: 1 DF, 2X/DAY (12.5MG TABLET, TWICE DAILY, WITH WATER)
  6. FLONASE [Concomitant]
     Active Substance: FLUTICASONE PROPIONATE
     Indication: HYPERSENSITIVITY
     Dosage: 50MCG, 2 SPRAYS DAILY UP EACH NOSTRIL
  7. ECOTRIN [Concomitant]
     Active Substance: ASPIRIN
     Indication: COAGULOPATHY
     Dosage: 81 MG, 1X/DAY, WITH WATER
  8. LYRICA [Suspect]
     Active Substance: PREGABALIN
     Indication: MYALGIA
     Dosage: 75 MG, 3X/DAY (WITH WATER)
  9. FLONASE [Concomitant]
     Active Substance: FLUTICASONE PROPIONATE
     Indication: DYSPNOEA
  10. NORCO [Concomitant]
     Active Substance: ACETAMINOPHEN\HYDROCODONE BITARTRATE
     Indication: PAIN
     Dosage: MAY TAKE ONLY 2 TIMES A DAY
  11. WARFARIN [Concomitant]
     Active Substance: WARFARIN
     Indication: THROMBOSIS
     Dosage: 5 MG, DAILY (WITH WATER)

REACTIONS (7)
  - Feeling cold [Unknown]
  - Withdrawal syndrome [Unknown]
  - Pain [Unknown]
  - Back pain [Not Recovered/Not Resolved]
  - Neck pain [Not Recovered/Not Resolved]
  - Poor quality sleep [Unknown]
  - Pain in extremity [Not Recovered/Not Resolved]

NARRATIVE: CASE EVENT DATE: 20170410
